FAERS Safety Report 6904086-1 (Version None)
Quarter: 2010Q3

REPORT INFORMATION
  Report Type: 
  Country: None (occurrence: None)
  Receive Date: 20100804
  Receipt Date: 20090306
  Transmission Date: 20110219
  Serious: No
  Sender: FDA-Public Use
  Company Number: US-PFIZER INC-2009180138

PATIENT
  Sex: Female

DRUGS (6)
  1. LYRICA [Suspect]
     Indication: PAIN
     Dosage: 50 MG, 1X/DAY
     Dates: start: 20080212, end: 20080201
  2. GABAPENTIN [Suspect]
     Dosage: 300 MG/DAY
  3. LEVOTHYROXINE [Concomitant]
     Dosage: UNK
  4. ACETYLSALICYLIC ACID [Concomitant]
     Dosage: UNK
  5. MULTIPLE VITAMIN [Concomitant]
     Dosage: UNK
  6. ALPRAZOLAM [Concomitant]
     Dosage: UNK

REACTIONS (4)
  - DIZZINESS [None]
  - EUPHORIC MOOD [None]
  - OEDEMA PERIPHERAL [None]
  - WEIGHT INCREASED [None]
